FAERS Safety Report 22287842 (Version 12)
Quarter: 2025Q3

REPORT INFORMATION
  Report Type: Report from Study
  Country: CA (occurrence: CA)
  Receive Date: 20230505
  Receipt Date: 20250821
  Transmission Date: 20251021
  Serious: Yes (Hospitalization, Other)
  Sender: TAKEDA
  Company Number: CA-TAKEDA-2023TUS041718

PATIENT
  Age: 62 Year
  Sex: Female

DRUGS (25)
  1. VEDOLIZUMAB [Suspect]
     Active Substance: VEDOLIZUMAB
     Indication: Colitis ulcerative
  2. VEDOLIZUMAB [Suspect]
     Active Substance: VEDOLIZUMAB
  3. VEDOLIZUMAB [Suspect]
     Active Substance: VEDOLIZUMAB
  4. VEDOLIZUMAB [Suspect]
     Active Substance: VEDOLIZUMAB
  5. VEDOLIZUMAB [Suspect]
     Active Substance: VEDOLIZUMAB
  6. VEDOLIZUMAB [Suspect]
     Active Substance: VEDOLIZUMAB
  7. VEDOLIZUMAB [Suspect]
     Active Substance: VEDOLIZUMAB
  8. Salofalk [Concomitant]
  9. RAMIPRIL [Concomitant]
     Active Substance: RAMIPRIL
  10. METOPROLOL [Concomitant]
     Active Substance: METOPROLOL
  11. DOCUSATE SODIUM [Concomitant]
     Active Substance: DOCUSATE SODIUM
  12. RABEPRAZOLE [Concomitant]
     Active Substance: RABEPRAZOLE
  13. BETAHISTINE [Concomitant]
     Active Substance: BETAHISTINE
  14. ASPIRIN [Concomitant]
     Active Substance: ASPIRIN
  15. HYDROCHLOROTHIAZIDE [Concomitant]
     Active Substance: HYDROCHLOROTHIAZIDE
  16. Pheniram [Concomitant]
  17. RESTORIL [Concomitant]
     Active Substance: TEMAZEPAM
  18. PANTOPRAZOLE SODIUM [Concomitant]
     Active Substance: PANTOPRAZOLE SODIUM
  19. ROSUVASTATIN CALCIUM [Concomitant]
     Active Substance: ROSUVASTATIN CALCIUM
  20. SCOPOLAMINE [Concomitant]
     Active Substance: SCOPOLAMINE
  21. PREGABALIN [Concomitant]
     Active Substance: PREGABALIN
  22. ATIVAN [Concomitant]
     Active Substance: LORAZEPAM
  23. HALDOL [Concomitant]
     Active Substance: HALOPERIDOL
  24. TYLENOL [Concomitant]
     Active Substance: ACETAMINOPHEN
  25. SEROQUEL [Concomitant]
     Active Substance: QUETIAPINE FUMARATE

REACTIONS (7)
  - Delirium [Recovering/Resolving]
  - Oesophageal achalasia [Not Recovered/Not Resolved]
  - Behaviour disorder [Unknown]
  - Blood pressure increased [Not Recovered/Not Resolved]
  - Pneumonia [Unknown]
  - Mobility decreased [Unknown]
  - Agitation [Unknown]

NARRATIVE: CASE EVENT DATE: 20230325
